FAERS Safety Report 6611919-5 (Version None)
Quarter: 2010Q1

REPORT INFORMATION
  Report Type: 
  Country: None (occurrence: None)
  Receive Date: 20100226
  Receipt Date: 20100226
  Transmission Date: 20100710
  Serious: Yes (Other)
  Sender: FDA-Public Use
  Company Number: None

PATIENT
  Age: 44 Year
  Sex: Female
  Weight: 46.7205 kg

DRUGS (1)
  1. SULFAMETHOXAZOLE AND TRIMETHOPRIM [Suspect]
     Indication: URINARY TRACT INFECTION
     Dosage: 1 TAB 2X/DAY PO
     Route: 048
     Dates: start: 20100220, end: 20100223

REACTIONS (13)
  - AGITATION [None]
  - ANXIETY [None]
  - ARTHRALGIA [None]
  - CONFUSIONAL STATE [None]
  - DECREASED APPETITE [None]
  - DEPRESSION [None]
  - DISORIENTATION [None]
  - HEADACHE [None]
  - IRRITABILITY [None]
  - OROPHARYNGEAL PAIN [None]
  - PALLOR [None]
  - PYREXIA [None]
  - RESTLESSNESS [None]
